APPROVED DRUG PRODUCT: MESTINON
Active Ingredient: PYRIDOSTIGMINE BROMIDE
Strength: 5MG/ML
Dosage Form/Route: INJECTABLE;INJECTION
Application: N009830 | Product #001 | TE Code: AP
Applicant: BAUSCH HEALTH US LLC
Approved: Approved Prior to Jan 1, 1982 | RLD: Yes | RS: Yes | Type: RX